FAERS Safety Report 16240278 (Version 1)
Quarter: 2019Q2

REPORT INFORMATION
  Report Type: Spontaneous
  Country: US (occurrence: US)
  Receive Date: 20190425
  Receipt Date: 20190425
  Transmission Date: 20190711
  Serious: No
  Sender: FDA-Public Use
  Company Number: US-TESARO-2018-TSO2550-US

PATIENT
  Sex: Female
  Weight: 100.68 kg

DRUGS (1)
  1. ZEJULA [Suspect]
     Active Substance: NIRAPARIB
     Dosage: 300 MG, QD, AT NIGHT BETWEEN 10 AND 11 PM
     Route: 048
     Dates: start: 20180802

REACTIONS (19)
  - Fluid retention [Unknown]
  - Tachycardia [Unknown]
  - Aspartate aminotransferase increased [Recovered/Resolved]
  - Haemoglobin decreased [Recovered/Resolved]
  - Food aversion [Unknown]
  - Taste disorder [Unknown]
  - Nightmare [Unknown]
  - Fatigue [Unknown]
  - Red blood cell count decreased [Unknown]
  - Hypertension [Unknown]
  - Decreased appetite [Unknown]
  - Weight decreased [Unknown]
  - Dry mouth [Unknown]
  - Product quality issue [Unknown]
  - Insomnia [Recovered/Resolved]
  - Product dose omission [Unknown]
  - Haematocrit decreased [Unknown]
  - Malabsorption [Unknown]
  - Peripheral swelling [Unknown]

NARRATIVE: CASE EVENT DATE: 2018
